FAERS Safety Report 22238504 (Version 1)
Quarter: 2023Q2

REPORT INFORMATION
  Report Type: Spontaneous
  Country: PL (occurrence: None)
  Receive Date: 20230421
  Receipt Date: 20230421
  Transmission Date: 20230721
  Serious: Yes (Other)
  Sender: FDA-Public Use
  Company Number: None

PATIENT
  Age: 54 Year
  Sex: Male
  Weight: 80 kg

DRUGS (1)
  1. TOCILIZUMAB [Suspect]
     Active Substance: TOCILIZUMAB
     Indication: COVID-19
     Dosage: SINGLE DOSE
     Route: 065
     Dates: start: 20201211, end: 20201211

REACTIONS (3)
  - Dyspnoea [Unknown]
  - Hypertransaminasaemia [Unknown]
  - Malaise [Unknown]

NARRATIVE: CASE EVENT DATE: 20201213
